FAERS Safety Report 4633784-8 (Version None)
Quarter: 2005Q2

REPORT INFORMATION
  Report Type: 
  Country: None (occurrence: None)
  Receive Date: 20050413
  Receipt Date: 20050406
  Transmission Date: 20051028
  Serious: Yes (Other)
  Sender: FDA-Public Use
  Company Number: PHBS2005TR04982

PATIENT
  Age: 4 Year
  Sex: Female

DRUGS (1)
  1. THIORIDAZINE HCL [Suspect]
     Dosage: 10 MG/D
     Route: 065

REACTIONS (7)
  - ACID BASE BALANCE ABNORMAL [None]
  - ALANINE AMINOTRANSFERASE INCREASED [None]
  - AMINO ACID METABOLISM DISORDER [None]
  - AMMONIA INCREASED [None]
  - ARGINASE DEFICIENCY [None]
  - ELECTROENCEPHALOGRAM ABNORMAL [None]
  - ORNITHINE TRANSCARBAMOYLASE DEFICIENCY [None]
